FAERS Safety Report 7053855-9 (Version None)
Quarter: 2010Q4

REPORT INFORMATION
  Report Type: 
  Country: None (occurrence: None)
  Receive Date: 20101020
  Receipt Date: 20101013
  Transmission Date: 20110411
  Serious: Yes (Hospitalization)
  Sender: FDA-Public Use
  Company Number: JP-JNJFOC-20100808477

PATIENT
  Sex: Male

DRUGS (10)
  1. CRAVIT [Suspect]
     Indication: LIVER ABSCESS
     Route: 048
  2. MEROPENEM [Suspect]
     Indication: LIVER ABSCESS
     Route: 041
  3. MEROPENEM [Suspect]
     Route: 041
  4. MEROPENEM [Suspect]
     Route: 041
  5. ZYLORIC [Suspect]
     Indication: PRODUCT USED FOR UNKNOWN INDICATION
     Route: 048
  6. LANSOPRAZOLE [Suspect]
     Indication: PRODUCT USED FOR UNKNOWN INDICATION
     Route: 065
  7. ALFAROL [Concomitant]
     Indication: PRODUCT USED FOR UNKNOWN INDICATION
     Route: 048
  8. ALESION [Concomitant]
     Indication: PRODUCT USED FOR UNKNOWN INDICATION
     Route: 048
  9. CALCIUM CARBONATE [Concomitant]
     Indication: PRODUCT USED FOR UNKNOWN INDICATION
     Route: 048
  10. RENAGEL [Concomitant]
     Indication: PRODUCT USED FOR UNKNOWN INDICATION
     Route: 048

REACTIONS (6)
  - ALANINE AMINOTRANSFERASE INCREASED [None]
  - ANAEMIA [None]
  - DRUG ERUPTION [None]
  - DUODENAL ULCER HAEMORRHAGE [None]
  - LIVER ABSCESS [None]
  - STEVENS-JOHNSON SYNDROME [None]
